FAERS Safety Report 7677211-5 (Version None)
Quarter: 2011Q3

REPORT INFORMATION
  Report Type: 
  Country: None (occurrence: None)
  Receive Date: 20110811
  Receipt Date: 20110804
  Transmission Date: 20111222
  Serious: Yes (Other)
  Sender: FDA-Public Use
  Company Number: GB-ROCHE-795714

PATIENT

DRUGS (2)
  1. HERCEPTIN [Suspect]
     Indication: BREAST CANCER
     Route: 065
  2. CHEMOTHERAPY [Suspect]
     Indication: BREAST CANCER
     Route: 065

REACTIONS (1)
  - NEUTROPENIC SEPSIS [None]
